FAERS Safety Report 7312722-3 (Version None)
Quarter: 2011Q1

REPORT INFORMATION
  Report Type: 
  Country: None (occurrence: None)
  Receive Date: 20110224
  Receipt Date: 20110128
  Transmission Date: 20110831
  Serious: Yes (Other)
  Sender: FDA-Public Use
  Company Number: PHHY2011SI06991

PATIENT
  Age: 60 Year
  Sex: Female

DRUGS (2)
  1. SANDIMMUNE [Suspect]
     Indication: ASTHMA
     Dosage: 50 MG, BID
     Route: 048
     Dates: start: 20100501
  2. HYDROCORTISONE [Concomitant]
     Dosage: 10+5+5 MG

REACTIONS (4)
  - SKIN DISORDER [None]
  - MYALGIA [None]
  - FATIGUE [None]
  - SINUSITIS [None]
